FAERS Safety Report 12647473 (Version 1)
Quarter: 2016Q3

REPORT INFORMATION
  Report Type: Spontaneous
  Country: US (occurrence: US)
  Receive Date: 20160812
  Receipt Date: 20160812
  Transmission Date: 20161109
  Serious: No
  Sender: FDA-Public Use
  Company Number: US-BRAINTREE LABORATORIES-160333

PATIENT
  Age: 64 Year
  Sex: Female
  Weight: 74.84 kg

DRUGS (1)
  1. PEG-3350 AND ELECTROLYTES [Suspect]
     Active Substance: POLYETHYLENE GLYCOL 3350\POTASSIUM CHLORIDE\SODIUM BICARBONATE\SODIUM CHLORIDE\SODIUM SULFATE\SODIUM SULFATE ANHYDROUS
     Indication: COLONOSCOPY
     Dosage: 2L
     Route: 048
     Dates: start: 20160511, end: 20160511

REACTIONS (7)
  - Chills [None]
  - Vomiting [None]
  - Lacrimation increased [None]
  - Nightmare [None]
  - Cough [None]
  - Fatigue [None]
  - Retching [None]

NARRATIVE: CASE EVENT DATE: 20160511
